FAERS Safety Report 21863639 (Version 2)
Quarter: 2023Q1

REPORT INFORMATION
  Report Type: Spontaneous
  Country: US (occurrence: US)
  Receive Date: 20230116
  Receipt Date: 20230314
  Transmission Date: 20230417
  Serious: No
  Sender: FDA-Public Use
  Company Number: US-BEH-2023154107

PATIENT
  Age: 59 Year
  Sex: Male

DRUGS (4)
  1. HIZENTRA [Suspect]
     Active Substance: HUMAN IMMUNOGLOBULIN G
     Indication: Immunodeficiency common variable
     Dosage: 60 MILLILITER, QW (50 + 10 ML)
     Route: 058
  2. HIZENTRA [Suspect]
     Active Substance: HUMAN IMMUNOGLOBULIN G
     Dosage: UNK
     Route: 058
     Dates: start: 20221229
  3. HIZENTRA [Suspect]
     Active Substance: HUMAN IMMUNOGLOBULIN G
     Dosage: 120 MILLILITER
     Route: 065
  4. HIZENTRA [Suspect]
     Active Substance: HUMAN IMMUNOGLOBULIN G
     Dosage: 120 MILLILITER, TOT
     Route: 065

REACTIONS (7)
  - Infusion site exfoliation [Unknown]
  - Infusion site vesicles [Unknown]
  - Dermatitis contact [Unknown]
  - Skin wrinkling [Unknown]
  - Pain [Unknown]
  - Dermatitis contact [Unknown]
  - Infusion site vesicles [Unknown]

NARRATIVE: CASE EVENT DATE: 20221230
